FAERS Safety Report 14500120 (Version 1)
Quarter: 2018Q1

REPORT INFORMATION
  Report Type: Not Available
  Country: US (occurrence: US)
  Receive Date: 20180207
  Receipt Date: 20180207
  Transmission Date: 20180509
  Serious: No
  Sender: FDA-Public Use
  Company Number: US-FOUNDATIONCONSUMERHC-2017-US-014524

PATIENT
  Age: 23 Year
  Sex: Female
  Weight: 46.72 kg

DRUGS (1)
  1. PLAN B ONE-STEP [Suspect]
     Active Substance: LEVONORGESTREL
     Dosage: 1 TABLET X1 DOSE
     Route: 048
     Dates: start: 20171202, end: 20171202

REACTIONS (5)
  - Fatigue [Unknown]
  - Nausea [Unknown]
  - Abdominal pain [Unknown]
  - Pain in extremity [Unknown]
  - Breast pain [Unknown]

NARRATIVE: CASE EVENT DATE: 20171203
